FAERS Safety Report 6173536-3 (Version None)
Quarter: 2009Q2

REPORT INFORMATION
  Report Type: 
  Country: None (occurrence: None)
  Receive Date: 20090430
  Receipt Date: 20090422
  Transmission Date: 20091009
  Serious: Yes (Life-Threatening)
  Sender: FDA-Public Use
  Company Number: B0566939A

PATIENT
  Sex: Male

DRUGS (10)
  1. PAXIL [Suspect]
     Indication: DEPRESSION
     Dosage: 10MG PER DAY
     Route: 048
     Dates: start: 20090217
  2. HALCION [Concomitant]
     Dosage: .5MG PER DAY
     Route: 048
     Dates: start: 20020308
  3. ASPIRIN [Concomitant]
     Dosage: 100MG PER DAY
     Route: 048
     Dates: start: 20020301
  4. HYPEN [Concomitant]
     Dosage: 400MG PER DAY
     Route: 048
     Dates: start: 20090302
  5. OPALMON [Concomitant]
     Route: 048
     Dates: start: 20090302
  6. EURODIN [Concomitant]
     Dosage: 2MG PER DAY
     Route: 048
     Dates: start: 20090217
  7. SOLANAX [Concomitant]
     Dosage: 1.2MG PER DAY
     Route: 048
     Dates: start: 20090217
  8. DEPAS [Concomitant]
     Dosage: 1MG PER DAY
     Route: 048
     Dates: start: 20090302
  9. CHINESE HERBAL MEDICINE [Concomitant]
  10. RHYTHMY [Concomitant]

REACTIONS (1)
  - SUICIDAL IDEATION [None]
